FAERS Safety Report 9433187 (Version 2)
Quarter: 2013Q4

REPORT INFORMATION
  Report Type: Spontaneous
  Country: US (occurrence: US)
  Receive Date: 20130731
  Receipt Date: 20131003
  Transmission Date: 20140711
  Serious: Yes (Death, Hospitalization)
  Sender: FDA-Public Use
  Company Number: US-GLAXOSMITHKLINE-A1035601A

PATIENT
  Age: 82 Year
  Sex: Female

DRUGS (1)
  1. FLOLAN [Suspect]
     Indication: PULMONARY ARTERIAL HYPERTENSION
     Dosage: 24NGKM CONTINUOUS
     Route: 065
     Dates: start: 19990930

REACTIONS (2)
  - Right ventricular failure [Fatal]
  - Arrhythmia [Unknown]
